FAERS Safety Report 4339717-6 (Version None)
Quarter: 2004Q1

REPORT INFORMATION
  Report Type: 
  Country: None (occurrence: None)
  Receive Date: 20040329
  Receipt Date: 20040204
  Transmission Date: 20041129
  Serious: No
  Sender: FDA-Public Use
  Company Number: 04P-163-0249516-00

PATIENT
  Sex: 0

DRUGS (1)
  1. HUMIRA [Suspect]
     Dosage: 40 MG,  SUBCUTANEOUS
     Route: 058
     Dates: start: 20031201

REACTIONS (2)
  - DEPRESSION [None]
  - FATIGUE [None]
